FAERS Safety Report 9138090 (Version 1)
Quarter: 2013Q1

REPORT INFORMATION
  Report Type: Report from Study
  Country: US (occurrence: US)
  Receive Date: 20130304
  Receipt Date: 20130304
  Transmission Date: 20140127
  Serious: Yes (Other)
  Sender: FDA-Public Use
  Company Number: US-BAXTER-2013BAX007232

PATIENT
  Sex: 0

DRUGS (3)
  1. CYTOXAN TABLETS (CYCLOPHOSPHAMIDE TABLETS, USP) [Suspect]
     Indication: NEOPLASM
  2. SORAFENIB [Suspect]
     Indication: NEOPLASM
  3. BEVACIZUMAB [Suspect]
     Indication: NEOPLASM
     Route: 042

REACTIONS (1)
  - Pneumothorax [Unknown]
